FAERS Safety Report 6118288-8 (Version None)
Quarter: 2009Q1

REPORT INFORMATION
  Report Type: 
  Country: None (occurrence: None)
  Receive Date: 20090314
  Receipt Date: 20090211
  Transmission Date: 20090719
  Serious: No
  Sender: FDA-Public Use
  Company Number: US-ABBOTT-09P-163-0503406-00

PATIENT
  Sex: Male
  Weight: 95.34 kg

DRUGS (6)
  1. HUMIRA [Suspect]
     Indication: PSORIASIS
     Route: 058
     Dates: start: 20090121
  2. PROTOPIC CREAM [Concomitant]
     Indication: PSORIASIS
     Route: 061
  3. OLUX FOAM [Concomitant]
     Indication: PSORIASIS
     Route: 061
  4. MOTRIN [Concomitant]
     Indication: DRUG USE FOR UNKNOWN INDICATION
     Route: 048
  5. SUDAFED 12 HOUR [Concomitant]
     Indication: SINUS CONGESTION
     Route: 048
  6. TACLONEX OINTMENT [Concomitant]
     Indication: PSORIASIS
     Route: 061

REACTIONS (5)
  - LOCAL SWELLING [None]
  - RASH [None]
  - RASH ERYTHEMATOUS [None]
  - RASH MACULAR [None]
  - SKIN BURNING SENSATION [None]
